FAERS Safety Report 4899539-4 (Version None)
Quarter: 2006Q1

REPORT INFORMATION
  Report Type: 
  Country: None (occurrence: None)
  Receive Date: 20060118
  Receipt Date: 20050829
  Transmission Date: 20060701
  Serious: No
  Sender: FDA-Public Use
  Company Number: 2005001716

PATIENT
  Sex: Female
  Weight: 69.4003 kg

DRUGS (10)
  1. TARCEVA [Suspect]
     Indication: BREAST CANCER
     Dosage: SEE IMAGE
     Route: 048
     Dates: start: 20050624, end: 20050707
  2. TARCEVA [Suspect]
     Indication: METASTASES TO LUNG
     Dosage: SEE IMAGE
     Route: 048
     Dates: start: 20050624, end: 20050707
  3. TARCEVA [Suspect]
     Indication: BREAST CANCER
     Dosage: SEE IMAGE
     Route: 048
     Dates: start: 20050707
  4. TARCEVA [Suspect]
     Indication: METASTASES TO LUNG
     Dosage: SEE IMAGE
     Route: 048
     Dates: start: 20050707
  5. LORAZEPAM [Concomitant]
  6. COENZYME Q10 [Concomitant]
  7. OMEGA 3 (FISH OIL) [Concomitant]
  8. HERCEPTIN [Concomitant]
  9. CALCIUM WITH VITAMIN D (CALCIUM WITH VITAMIN D) [Concomitant]
  10. MULTIVITAMIN [Concomitant]

REACTIONS (4)
  - DIARRHOEA [None]
  - GLOSSODYNIA [None]
  - ORAL PAIN [None]
  - RASH [None]
